FAERS Safety Report 9373333 (Version 3)
Quarter: 2013Q3

REPORT INFORMATION
  Report Type: Report from Study
  Country: US (occurrence: US)
  Receive Date: 20130627
  Receipt Date: 20130812
  Transmission Date: 20140515
  Serious: Yes (Hospitalization)
  Sender: FDA-Public Use
  Company Number: US-ACTELION-A-US2013-84720

PATIENT
  Age: 44 Year
  Sex: Male

DRUGS (2)
  1. VELETRI [Suspect]
     Indication: PULMONARY ARTERIAL HYPERTENSION
     Dosage: 11 NG/KG, PER MIN
     Route: 042
     Dates: start: 20130603
  2. ADCIRCA [Concomitant]

REACTIONS (7)
  - Cardio-respiratory arrest [Unknown]
  - Abnormal behaviour [Unknown]
  - Alcohol abuse [Unknown]
  - Hallucination [Unknown]
  - Personality change [Unknown]
  - Intentional medical device removal by patient [Unknown]
  - Drug dose omission [Unknown]
